FAERS Safety Report 8509331-7 (Version None)
Quarter: 2012Q3

REPORT INFORMATION
  Report Type: 
  Country: None (occurrence: None)
  Receive Date: 20120713
  Receipt Date: 20120709
  Transmission Date: 20120928
  Serious: Yes (Hospitalization)
  Sender: FDA-Public Use
  Company Number: CN-ROCHE-1085904

PATIENT
  Age: 54 Year
  Sex: Male
  Weight: 79 kg

DRUGS (9)
  1. TACROLIMUS [Suspect]
     Indication: LIVER TRANSPLANT
     Route: 048
     Dates: start: 20091230, end: 20110101
  2. MYCOPHENOLATE MOFETIL [Concomitant]
     Indication: LIVER TRANSPLANT
     Route: 048
     Dates: start: 20101110, end: 20110101
  3. RIFAMPICIN [Suspect]
     Indication: BONE TUBERCULOSIS
     Route: 048
     Dates: start: 20100301, end: 20100601
  4. PREDNISONE [Concomitant]
     Indication: LIVER TRANSPLANT
     Dates: start: 20091230
  5. TACROLIMUS [Suspect]
     Route: 048
     Dates: start: 20110101
  6. CELLCEPT [Suspect]
     Indication: LIVER TRANSPLANT
     Route: 048
     Dates: start: 20091230, end: 20100301
  7. MYCOPHENOLATE MOFETIL [Concomitant]
     Dosage: 500MG IN THE MORNING,250MG IN THE EVENING
     Route: 048
     Dates: start: 20120401
  8. ISONIAZID [Suspect]
     Indication: BONE TUBERCULOSIS
     Route: 048
     Dates: start: 20100301, end: 20100601
  9. MYCOPHENOLATE MOFETIL [Concomitant]
     Route: 048
     Dates: start: 20110101, end: 20120401

REACTIONS (6)
  - BONE TUBERCULOSIS [None]
  - TOXICITY TO VARIOUS AGENTS [None]
  - DRUG LEVEL INCREASED [None]
  - BLOOD BILIRUBIN INCREASED [None]
  - TRANSPLANT REJECTION [None]
  - HEPATIC FUNCTION ABNORMAL [None]
